FAERS Safety Report 5937478-8 (Version None)
Quarter: 2008Q4

REPORT INFORMATION
  Report Type: 
  Country: None (occurrence: None)
  Receive Date: 20081031
  Receipt Date: 20081024
  Transmission Date: 20090506
  Serious: Yes (Other)
  Sender: FDA-Public Use
  Company Number: B0543984A

PATIENT
  Age: 42 Year
  Sex: Female

DRUGS (2)
  1. AUGMENTIN '125' [Suspect]
     Indication: DRUG USE FOR UNKNOWN INDICATION
     Dosage: 1.2G PER DAY
     Route: 042
     Dates: start: 20081002, end: 20081013
  2. AUGMENTIN '125' [Concomitant]
     Dosage: 1G THREE TIMES PER DAY
     Dates: start: 20081014

REACTIONS (1)
  - PHLEBITIS [None]
